APPROVED DRUG PRODUCT: BOSENTAN
Active Ingredient: BOSENTAN
Strength: 32MG
Dosage Form/Route: TABLET, FOR SUSPENSION;ORAL
Application: A213154 | Product #001 | TE Code: AB
Applicant: NATCO PHARMA LTD
Approved: Feb 5, 2025 | RLD: No | RS: No | Type: RX

EXCLUSIVITY:
Code: PC | Date: Feb 14, 2026